FAERS Safety Report 7909289-5 (Version None)
Quarter: 2011Q4

REPORT INFORMATION
  Report Type: 
  Country: None (occurrence: None)
  Receive Date: 20111111
  Receipt Date: 20111101
  Transmission Date: 20120403
  Serious: Yes (Other)
  Sender: FDA-Public Use
  Company Number: GB-ELI_LILLY_AND_COMPANY-GB201111002206

PATIENT
  Sex: Female

DRUGS (1)
  1. BYETTA [Suspect]
     Dosage: UNK, UNKNOWN

REACTIONS (4)
  - PANCREATIC INSUFFICIENCY [None]
  - FAECAL ELASTASE CONCENTRATION DECREASED [None]
  - DIARRHOEA [None]
  - INFLAMMATORY MARKER INCREASED [None]
